FAERS Safety Report 9577455 (Version 1)
Quarter: 2013Q4

REPORT INFORMATION
  Report Type: Spontaneous
  Country: US (occurrence: US)
  Receive Date: 20131001
  Receipt Date: 20131001
  Transmission Date: 20140711
  Serious: No
  Sender: FDA-Public Use
  Company Number: US-AMGEN-USASP2013008082

PATIENT
  Age: 58 Year
  Sex: Female
  Weight: 104.31 kg

DRUGS (8)
  1. ENBREL [Suspect]
     Indication: PRODUCT USED FOR UNKNOWN INDICATION
     Dosage: 50 MG, ONCE A WEEK
     Route: 058
  2. ASPIRIN [Concomitant]
     Dosage: 81 MG, UNK
  3. THYROID [Concomitant]
     Dosage: 130 MG, UNK
  4. VITAMIN B [Concomitant]
     Dosage: UNK
  5. OSTEO BI-FLEX [Concomitant]
     Dosage: UNK
  6. CRANBERRY                          /01512301/ [Concomitant]
     Dosage: UNK
  7. BLACK COHOSH                       /01456801/ [Concomitant]
     Dosage: 1000 MG, UNK
  8. LYSINE [Concomitant]
     Dosage: 500 MG, UNK

REACTIONS (2)
  - Injection site pruritus [Unknown]
  - Injection site erythema [Unknown]
